FAERS Safety Report 9053461 (Version 3)
Quarter: 2013Q1

REPORT INFORMATION
  Report Type: Spontaneous
  Country: DE (occurrence: DE)
  Receive Date: 20130128
  Receipt Date: 20130303
  Transmission Date: 20140127
  Serious: Yes (Other)
  Sender: FDA-Public Use
  Company Number: DE-TEVA-328064GER

PATIENT
  Age: 40 None
  Sex: Female
  Weight: 78 kg

DRUGS (1)
  1. COPAXONE [Suspect]
     Indication: MULTIPLE SCLEROSIS
     Dosage: 20 MILLIGRAM DAILY;
     Route: 058
     Dates: start: 20100516, end: 20120226

REACTIONS (2)
  - Gestational diabetes [Recovered/Resolved]
  - Normal newborn [Unknown]
